FAERS Safety Report 6429864-7 (Version None)
Quarter: 2009Q4

REPORT INFORMATION
  Report Type: 
  Country: None (occurrence: None)
  Receive Date: 20091106
  Receipt Date: 20091029
  Transmission Date: 20100525
  Serious: Yes (Hospitalization)
  Sender: FDA-Public Use
  Company Number: US-JNJFOC-20091009124

PATIENT
  Sex: Female
  Weight: 61.24 kg

DRUGS (6)
  1. REMICADE [Suspect]
     Route: 042
  2. REMICADE [Suspect]
     Indication: CROHN'S DISEASE
     Route: 042
  3. MERCAPTOPURINE [Concomitant]
     Indication: CROHN'S DISEASE
  4. SEASONALE [Concomitant]
     Indication: CONTRACEPTION
  5. PROVENTIL GENTLEHALER [Concomitant]
  6. TYLENOL [Concomitant]
     Indication: PREMEDICATION

REACTIONS (8)
  - DEHYDRATION [None]
  - FLUSHING [None]
  - INAPPROPRIATE SCHEDULE OF DRUG ADMINISTRATION [None]
  - INFUSION RELATED REACTION [None]
  - NAUSEA [None]
  - PALPITATIONS [None]
  - TACHYCARDIA [None]
  - WEIGHT DECREASED [None]
